FAERS Safety Report 12709110 (Version 1)
Quarter: 2016Q3

REPORT INFORMATION
  Report Type: Spontaneous
  Country: US (occurrence: None)
  Receive Date: 20160901
  Receipt Date: 20160901
  Transmission Date: 20161109
  Serious: Yes (Disabling, Other)
  Sender: FDA-Public Use
  Company Number: None

PATIENT
  Age: 79 Year
  Sex: Male
  Weight: 120.2 kg

DRUGS (16)
  1. GABAPENTIN. [Concomitant]
     Active Substance: GABAPENTIN
  2. BUMETANIDE. [Concomitant]
     Active Substance: BUMETANIDE
  3. TAMSULOSIN [Concomitant]
     Active Substance: TAMSULOSIN
  4. ANTIPRAZOLE SOD [Concomitant]
  5. METROPROLOL [Concomitant]
     Active Substance: METOPROLOL
  6. FLORASTORE [Concomitant]
  7. GENTAMICIN. [Suspect]
     Active Substance: GENTAMICIN
     Indication: INFECTION
     Route: 042
     Dates: start: 20160707, end: 20160711
  8. HUMULIN R [Concomitant]
     Active Substance: INSULIN HUMAN
  9. COUMADIN [Concomitant]
     Active Substance: WARFARIN SODIUM
  10. VITIMIN C [Concomitant]
  11. ULORIC [Concomitant]
     Active Substance: FEBUXOSTAT
  12. VITIMIN D [Concomitant]
  13. IBESARTAN [Concomitant]
  14. ASTROVASTATIN [Concomitant]
  15. HUMULIN N [Concomitant]
     Active Substance: INSULIN HUMAN
  16. BUMETANIDE. [Concomitant]
     Active Substance: BUMETANIDE

REACTIONS (2)
  - Balance disorder [None]
  - Vertigo [None]

NARRATIVE: CASE EVENT DATE: 20160713
